FAERS Safety Report 7867155-8 (Version None)
Quarter: 2011Q4

REPORT INFORMATION
  Report Type: 
  Country: None (occurrence: None)
  Receive Date: 20111028
  Receipt Date: 20111020
  Transmission Date: 20120403
  Serious: Yes (Other)
  Sender: FDA-Public Use
  Company Number: GB-BRISTOL-MYERS SQUIBB COMPANY-16117772

PATIENT
  Age: 39 Year
  Sex: Male
  Weight: 71 kg

DRUGS (7)
  1. OMEPRAZOLE [Concomitant]
     Indication: DYSPEPSIA
     Route: 048
     Dates: start: 20110801
  2. REYATAZ [Suspect]
     Indication: HIV INFECTION
     Dosage: 13JAN09-26JUL11, 300MG 26JUL11-CONT, 400MG
     Route: 048
     Dates: start: 20090113, end: 20110726
  3. TERBINAFINE HCL [Concomitant]
     Indication: ONYCHOMYCOSIS
     Route: 048
  4. CALCIUM + VITAMIN D [Concomitant]
     Indication: VITAMIN D DECREASED
  5. SERTRALINE HYDROCHLORIDE [Concomitant]
     Indication: DEPRESSION
     Route: 048
  6. RITONAVIR [Suspect]
  7. TRUVADA [Suspect]
     Indication: HIV INFECTION
     Dosage: 1DF=1 TAB TENOFOVIR DISOPROXIL 245MG/EMTRICITABINE 200MG
     Route: 048
     Dates: start: 20090113

REACTIONS (2)
  - GLOMERULAR FILTRATION RATE DECREASED [None]
  - VIRAL LOAD INCREASED [None]
